FAERS Safety Report 9167327 (Version 1)
Quarter: 2013Q1

REPORT INFORMATION
  Report Type: Spontaneous
  Country: CA (occurrence: None)
  Receive Date: 20130307
  Receipt Date: 20130307
  Transmission Date: 20140127
  Serious: No
  Sender: FDA-Public Use
  Company Number: S13001269

PATIENT
  Age: 63 Year
  Sex: Male
  Weight: 60.32 kg

DRUGS (5)
  1. COVERSYL [Suspect]
     Indication: PRODUCT USED FOR UNKNOWN INDICATION
     Route: 048
  2. APO-GLYBURIDE (GLIBENCLAMIDE) [Concomitant]
  3. METFORMIN (METFORMIN) [Concomitant]
  4. CRESTOR (ROSUVASTATIN CALCIUM) [Concomitant]
  5. TN UNSPECIFIED (HYDROCHLOROTHIAZIDE) [Concomitant]

REACTIONS (3)
  - Haemoptysis [None]
  - Sputum discoloured [None]
  - Gastrooesophageal reflux disease [None]
